FAERS Safety Report 6097550-1 (Version None)
Quarter: 2009Q1

REPORT INFORMATION
  Report Type: 
  Country: None (occurrence: None)
  Receive Date: 20090227
  Receipt Date: 20081023
  Transmission Date: 20090719
  Serious: No
  Sender: FDA-Public Use
  Company Number: A0753306A

PATIENT
  Age: 15 Year
  Sex: Female

DRUGS (8)
  1. IMITREX [Suspect]
     Indication: MIGRAINE
     Route: 058
     Dates: start: 20070101, end: 20070101
  2. IMITREX [Suspect]
     Route: 045
     Dates: start: 20070101, end: 20070101
  3. IMITREX [Suspect]
     Dosage: 100MG VARIABLE DOSE
     Route: 048
     Dates: start: 20030101
  4. TOPAMAX [Concomitant]
  5. AMITRIPTYLINE [Concomitant]
  6. ADVAIR HFA [Concomitant]
  7. STADOL [Concomitant]
  8. IBUPROFEN [Concomitant]

REACTIONS (2)
  - DRUG INEFFECTIVE [None]
  - INJECTION SITE SWELLING [None]
